FAERS Safety Report 11696497 (Version 1)
Quarter: 2015Q4

REPORT INFORMATION
  Report Type: Spontaneous
  Country: CN (occurrence: CN)
  Receive Date: 20151104
  Receipt Date: 20151104
  Transmission Date: 20160304
  Serious: Yes (Hospitalization, Other)
  Sender: FDA-Public Use
  Company Number: CN-VIIV HEALTHCARE LIMITED-CN2015GSK151133

PATIENT
  Age: 39 Year
  Sex: Male

DRUGS (2)
  1. LAMIVUDINE. [Suspect]
     Active Substance: LAMIVUDINE
     Indication: CHRONIC HEPATITIS B
     Dosage: UNK
     Dates: start: 2002
  2. ADEFOVIR [Suspect]
     Active Substance: ADEFOVIR
     Indication: CHRONIC HEPATITIS B
     Dosage: UNK

REACTIONS (11)
  - Blood phosphorus decreased [Unknown]
  - Renal impairment [Unknown]
  - Blood pressure increased [Unknown]
  - Pain [Unknown]
  - Osteomalacia [Recovering/Resolving]
  - Gait disturbance [Unknown]
  - Drug resistance [Unknown]
  - Hypophosphataemia [Recovering/Resolving]
  - Blood uric acid decreased [Unknown]
  - Hypouricaemia [Unknown]
  - Beta 2 microglobulin abnormal [Unknown]
